FAERS Safety Report 17080511 (Version 2)
Quarter: 2019Q4

REPORT INFORMATION
  Report Type: Spontaneous
  Country: SE (occurrence: SE)
  Receive Date: 20191127
  Receipt Date: 20191128
  Transmission Date: 20200122
  Serious: Yes (Hospitalization)
  Sender: FDA-Public Use
  Company Number: SE-JNJFOC-20191133533

PATIENT

DRUGS (6)
  1. IPREN UNSPECIFIED [Suspect]
     Active Substance: IBUPROFEN
     Indication: PRODUCT USED FOR UNKNOWN INDICATION
     Dosage: 3 IPREN?IBUPROFEN/ IBUPROFEN DC 85
     Route: 048
     Dates: start: 20181001, end: 20181001
  2. ATARAX [Suspect]
     Active Substance: HYDROXYZINE HYDROCHLORIDE
     Indication: PRODUCT USED FOR UNKNOWN INDICATION
     Dosage: ATARAX 25 ML?GENERIC NAME: HYDROXYZINE/ HYDROXYZINE HYDROCHLORIDE
     Route: 048
     Dates: start: 20181001, end: 20181001
  3. ALVEDON [Suspect]
     Active Substance: ACETAMINOPHEN
     Indication: PRODUCT USED FOR UNKNOWN INDICATION
     Dosage: 3 ALVEDON
     Route: 048
     Dates: start: 20181001, end: 20181001
  4. ALIMEMAZINE [Suspect]
     Active Substance: TRIMEPRAZINE
     Indication: PRODUCT USED FOR UNKNOWN INDICATION
     Dosage: 20 MG 15-20 PCS
     Route: 048
     Dates: start: 20181001, end: 20181001
  5. LERGIGAN                           /00033002/ [Suspect]
     Active Substance: PROMETHAZINE HYDROCHLORIDE
     Indication: PRODUCT USED FOR UNKNOWN INDICATION
     Dosage: 15-20?GENERIC: PROMETHAZINE/PROMETHAZINE HYDROCHLORIDE
     Route: 048
     Dates: start: 20181001, end: 20181001
  6. THERALEN [Suspect]
     Active Substance: TRIMEPRAZINE
     Indication: PRODUCT USED FOR UNKNOWN INDICATION
     Dosage: 15-20 PCS?GENERIC NAME: ALIMEMAZINE/ALIMEMAZINE HEMITARTRATE
     Route: 048
     Dates: start: 20181001, end: 20181001

REACTIONS (3)
  - Vomiting [Unknown]
  - Intentional self-injury [Unknown]
  - Intentional overdose [Unknown]

NARRATIVE: CASE EVENT DATE: 20181001
